FAERS Safety Report 9919405 (Version 1)
Quarter: 2014Q1

REPORT INFORMATION
  Report Type: Spontaneous
  Country: US (occurrence: US)
  Receive Date: 20140224
  Receipt Date: 20140224
  Transmission Date: 20141002
  Serious: No
  Sender: FDA-Public Use
  Company Number: US-009507513-1402USA007409

PATIENT
  Age: 76 Year
  Sex: Female
  Weight: 71.66 kg

DRUGS (4)
  1. MIRALAX [Suspect]
     Indication: CONSTIPATION
     Dosage: 17 G, QD
     Route: 048
     Dates: start: 201302, end: 201402
  2. MIRALAX [Suspect]
     Dosage: UNK UNK, QOD
     Route: 048
  3. LITHIUM [Concomitant]
     Indication: BIPOLAR DISORDER
     Dosage: UNK, UNKNOWN
  4. OCUVITE PRESERVISION [Concomitant]
     Indication: EYE DISORDER
     Dosage: UNK, UNKNOWN

REACTIONS (4)
  - Pain [Unknown]
  - Frequent bowel movements [Unknown]
  - Incorrect drug administration duration [Unknown]
  - Inappropriate schedule of drug administration [Unknown]
